FAERS Safety Report 8880581 (Version 1)
Quarter: 2012Q4

REPORT INFORMATION
  Report Type: 
  Country: IN (occurrence: IN)
  Receive Date: 20121101
  Receipt Date: 20121101
  Transmission Date: 20130627
  Serious: Yes (Hospitalization)
  Sender: FDA-Public Use
  Company Number: IN-PAR PHARMACEUTICAL, INC-2012SCPR004689

PATIENT

DRUGS (3)
  1. FLUOXETINE [Suspect]
     Indication: DEPRESSIVE SYMPTOM
     Dosage: 20 mg, / day
     Route: 065
  2. ARIPIPRAZOLE [Interacting]
     Indication: SCHIZOAFFECTIVE DISORDER
     Dosage: 10 mg, / day
     Route: 065
  3. ARIPIPRAZOLE [Interacting]
     Dosage: 30 mg, / day
     Route: 065

REACTIONS (4)
  - Parkinsonism [Recovered/Resolved]
  - Dystonia [Recovered/Resolved]
  - Drug interaction [Unknown]
  - Akathisia [Recovered/Resolved]
